FAERS Safety Report 23784514 (Version 1)
Quarter: 2024Q2

REPORT INFORMATION
  Report Type: Spontaneous
  Country: US (occurrence: None)
  Receive Date: 20240425
  Receipt Date: 20240425
  Transmission Date: 20240716
  Serious: No
  Sender: FDA-Public Use
  Company Number: None

PATIENT
  Age: 18 Year
  Sex: Female
  Weight: 100.1 kg

DRUGS (3)
  1. BLEOMYCIN [Suspect]
     Active Substance: BLEOMYCIN SULFATE
  2. CISPLATIN [Concomitant]
     Active Substance: CISPLATIN
  3. ETOPOSIDE [Suspect]
     Active Substance: ETOPOSIDE

REACTIONS (9)
  - Hypoxia [None]
  - Dyspnoea exertional [None]
  - Painful respiration [None]
  - Heart rate increased [None]
  - Cough [None]
  - Body temperature increased [None]
  - Pleural effusion [None]
  - Lymphadenopathy mediastinal [None]
  - Growing teratoma syndrome [None]

NARRATIVE: CASE EVENT DATE: 20220119
